FAERS Safety Report 9962189 (Version 4)
Quarter: 2014Q4

REPORT INFORMATION
  Report Type: Spontaneous
  Country: US (occurrence: US)
  Receive Date: 20140305
  Receipt Date: 20141218
  Transmission Date: 20150529
  Serious: Yes (Hospitalization, Other)
  Sender: FDA-Public Use
  Company Number: US-BAYER-2014-030710

PATIENT
  Age: 23 Year
  Sex: Female
  Weight: 72.56 kg

DRUGS (2)
  1. MIRENA [Suspect]
     Active Substance: LEVONORGESTREL
     Indication: CONTRACEPTION
     Dosage: 20 MCG/24HR, CONT
     Route: 015
     Dates: start: 20121214, end: 20130925
  2. MIRENA [Suspect]
     Active Substance: LEVONORGESTREL
     Indication: CONTRACEPTION
     Dosage: 20 MCG/24HR, CONT
     Route: 015
     Dates: start: 201212, end: 201310

REACTIONS (16)
  - Uterine perforation [None]
  - Emotional distress [None]
  - Nausea [None]
  - Device issue [None]
  - Pain [None]
  - Thrombosis [None]
  - Genital haemorrhage [None]
  - Nervousness [None]
  - Shock [None]
  - Nerve injury [None]
  - Dizziness [None]
  - General physical health deterioration [None]
  - Anxiety [None]
  - Menometrorrhagia [None]
  - Abdominal pain [None]
  - Anhedonia [None]

NARRATIVE: CASE EVENT DATE: 201302
